FAERS Safety Report 23060325 (Version 2)
Quarter: 2023Q4

REPORT INFORMATION
  Report Type: Spontaneous
  Country: US (occurrence: US)
  Receive Date: 20231012
  Receipt Date: 20231018
  Transmission Date: 20240110
  Serious: No
  Sender: FDA-Public Use
  Company Number: US-AMGEN-USASP2023182045

PATIENT
  Sex: Male

DRUGS (1)
  1. PROLIA [Suspect]
     Active Substance: DENOSUMAB
     Indication: Prostate cancer
     Dosage: 60 MILLIGRAM, UNK
     Route: 065

REACTIONS (2)
  - Lipase increased [Unknown]
  - Off label use [Unknown]
